FAERS Safety Report 8937688 (Version 2)
Quarter: 2012Q4

REPORT INFORMATION
  Report Type: 
  Country: US (occurrence: US)
  Receive Date: 20121126
  Receipt Date: 20121212
  Transmission Date: 20130627
  Serious: Yes (Death, Other)
  Sender: FDA-Public Use
  Company Number: US-ASTELLAS-1109013

PATIENT
  Sex: Female

DRUGS (2)
  1. TARCEVA [Suspect]
     Indication: MALIGNANT RESPIRATORY TRACT NEOPLASM
  2. HEPARIN [Concomitant]

REACTIONS (5)
  - Lung neoplasm malignant [Fatal]
  - Lung disorder [Fatal]
  - Pneumonia [Fatal]
  - Multi-organ failure [Unknown]
  - Pyrexia [Unknown]
